FAERS Safety Report 12173137 (Version 1)
Quarter: 2016Q1

REPORT INFORMATION
  Report Type: Report from Study
  Country: BR (occurrence: BR)
  Receive Date: 20160311
  Receipt Date: 20160311
  Transmission Date: 20160526
  Serious: Yes (Death, Hospitalization, Other)
  Sender: FDA-Public Use
  Company Number: BR-ABBVIE-16K-020-1579269-00

PATIENT
  Age: 68 Year
  Sex: Female

DRUGS (1)
  1. HUMIRA [Suspect]
     Active Substance: ADALIMUMAB
     Indication: RHEUMATOID ARTHRITIS
     Route: 058
     Dates: start: 20151124

REACTIONS (8)
  - Hypotension [Unknown]
  - Cardiac arrest [Unknown]
  - Arrhythmia [Unknown]
  - Brain neoplasm [Unknown]
  - Dizziness [Unknown]
  - Thrombosis [Unknown]
  - Death [Fatal]
  - Labyrinthitis [Unknown]

NARRATIVE: CASE EVENT DATE: 20160225
